FAERS Safety Report 17455593 (Version 1)
Quarter: 2020Q1

REPORT INFORMATION
  Report Type: Spontaneous
  Country: US (occurrence: US)
  Receive Date: 20200212
  Receipt Date: 20200212
  Transmission Date: 20200409
  Serious: Yes (Other)
  Sender: FDA-Public Use
  Company Number: None

PATIENT
  Age: 53 Year
  Sex: Female
  Weight: 77.57 kg

DRUGS (1)
  1. CODEINE-GUAIFENESIN [Suspect]
     Active Substance: CODEINE PHOSPHATE\GUAIFENESIN
     Indication: COUGH
     Route: 048
     Dates: start: 20191019, end: 20191019

REACTIONS (2)
  - Dyspepsia [None]
  - Chest pain [None]

NARRATIVE: CASE EVENT DATE: 20191019
